FAERS Safety Report 17597013 (Version 1)
Quarter: 2020Q1

REPORT INFORMATION
  Report Type: Spontaneous
  Country: US (occurrence: US)
  Receive Date: 20200330
  Receipt Date: 20200330
  Transmission Date: 20200409
  Serious: Yes (Hospitalization)
  Sender: FDA-Public Use
  Company Number: US-TEVA-2020-US-1213958

PATIENT

DRUGS (6)
  1. IFOSFAMIDE. [Suspect]
     Active Substance: IFOSFAMIDE
     Indication: EWING-LIKE SARCOMA
     Dosage: SCHEDULED TO RECEIVE A CUMULATIVE DOSAGE OF 63 G/M2
     Route: 065
  2. CYCLOPHOSPHAMIDE. [Suspect]
     Active Substance: CYCLOPHOSPHAMIDE
     Indication: EWING-LIKE SARCOMA
     Dosage: SCHEDULED TO RECEIVE A CUMULATIVE DOSAGE OF 8,400 MG/M2
     Route: 065
  3. PEGFILGRASTIM [Concomitant]
     Active Substance: PEGFILGRASTIM
     Indication: EWING-LIKE SARCOMA
     Dosage: ADMINISTERED ONCE PER CYCLE BEGINNING AT LEAST 24 HOURS AFTER COMPLETION OF CHEMOTHERAPY
     Route: 065
  4. ETOPOSIDE. [Suspect]
     Active Substance: ETOPOSIDE
     Indication: EWING-LIKE SARCOMA
     Dosage: SCHEDULED TO RECEIVE A CUMULATIVE DOSAGE OF 3,500 MG/M2
     Route: 065
  5. VINCRISTINE [Suspect]
     Active Substance: VINCRISTINE
     Indication: EWING-LIKE SARCOMA
     Dosage: SCHEDULED TO RECEIVE A CUMULATIVE DOSAGE OF 14 MG (2 MG PER DOSE)
     Route: 065
  6. DOXORUBICIN [Suspect]
     Active Substance: DOXORUBICIN
     Indication: EWING-LIKE SARCOMA
     Dosage: SCHEDULED TO RECEIVE A CUMULATIVE DOSAGE OF 375 MG/M2
     Route: 065

REACTIONS (1)
  - Haematotoxicity [Unknown]
